FAERS Safety Report 7483773-3 (Version None)
Quarter: 2011Q2

REPORT INFORMATION
  Report Type: 
  Country: None (occurrence: None)
  Receive Date: 20110509
  Receipt Date: 20110422
  Transmission Date: 20111010
  Serious: Yes (Hospitalization)
  Sender: FDA-Public Use
  Company Number: 031521

PATIENT
  Age: 47 Year
  Sex: Female

DRUGS (6)
  1. CIMZIA [Suspect]
     Dosage: (DOSE : 200 MG INJECTION SUBCUTANEOUS)
     Route: 058
     Dates: start: 20070601, end: 20081101
  2. IMUREL /00001501/ [Concomitant]
  3. HUMIRA [Suspect]
     Dosage: (40 MG INJECTION SUBUCTANEOUS), (40 MG INJECTION SUBCUTANEOUS)
     Route: 058
     Dates: start: 20070201, end: 20070501
  4. HUMIRA [Suspect]
     Dosage: (40 MG INJECTION SUBUCTANEOUS), (40 MG INJECTION SUBCUTANEOUS)
     Route: 058
     Dates: start: 20080701, end: 20100301
  5. REMICADE [Suspect]
     Dosage: (100 MG INJECTION INTRAVNEOUS (NOT SPECIFIED)), (100 MG INJECTION INTRAVENOUS (NOT OTHERWISE SPECIFI
     Route: 042
     Dates: start: 20100301, end: 20100401
  6. REMICADE [Suspect]
     Dosage: (100 MG INJECTION INTRAVNEOUS (NOT SPECIFIED)), (100 MG INJECTION INTRAVENOUS (NOT OTHERWISE SPECIFI
     Route: 042
     Dates: start: 20060101, end: 20061201

REACTIONS (4)
  - SYSTEMIC LUPUS ERYTHEMATOSUS [None]
  - ARTHRALGIA [None]
  - PRURITUS GENERALISED [None]
  - MUSCULOSKELETAL PAIN [None]
